FAERS Safety Report 10238468 (Version 1)
Quarter: 2014Q2

REPORT INFORMATION
  Report Type: Spontaneous
  Country: DE (occurrence: None)
  Receive Date: 20140612
  Receipt Date: 20140612
  Transmission Date: 20141212
  Serious: Yes (Other)
  Sender: FDA-Public Use
  Company Number: COL_16191_2014

PATIENT
  Age: 7 Year
  Sex: Female

DRUGS (1)
  1. ELMEX [Suspect]
     Indication: PRODUCT USED FOR UNKNOWN INDICATION
     Route: 048
     Dates: start: 20140506, end: 20140506

REACTIONS (3)
  - Rash erythematous [None]
  - Juvenile idiopathic arthritis [None]
  - Drug intolerance [None]
